FAERS Safety Report 25853749 (Version 1)
Quarter: 2025Q3

REPORT INFORMATION
  Report Type: Spontaneous
  Country: US (occurrence: US)
  Receive Date: 20250926
  Receipt Date: 20250926
  Transmission Date: 20251021
  Serious: Yes (Death, Other)
  Sender: AMGEN
  Company Number: US-AMGEN-USASP2025189342

PATIENT
  Age: 60 Year
  Sex: Male

DRUGS (3)
  1. BEVACIZUMAB [Suspect]
     Active Substance: BEVACIZUMAB
     Indication: Epithelioid mesothelioma
     Route: 065
  2. CARBOPLATIN [Concomitant]
     Active Substance: CARBOPLATIN
     Indication: Epithelioid mesothelioma
  3. PEMETREXED [Concomitant]
     Active Substance: PEMETREXED
     Indication: Epithelioid mesothelioma

REACTIONS (4)
  - Death [Fatal]
  - Epithelioid mesothelioma [Unknown]
  - Metastases to peritoneum [Unknown]
  - Off label use [Unknown]
